FAERS Safety Report 24071568 (Version 1)
Quarter: 2024Q3

REPORT INFORMATION
  Report Type: Report from Study
  Country: DE (occurrence: DE)
  Receive Date: 20240710
  Receipt Date: 20240710
  Transmission Date: 20241017
  Serious: No
  Sender: ROCHE
  Company Number: DE-ROCHE-3481074

PATIENT
  Age: 7 Year
  Sex: Male
  Weight: 23.2 kg

DRUGS (3)
  1. EVRYSDI [Suspect]
     Active Substance: RISDIPLAM
     Indication: Spinal muscular atrophy
     Dosage: ON 16/AUG/2023, HE RECEIVED HER LAST DOSE.?ON 22/APR/2024, HE RECEIVED HER LAST DOSE
     Route: 048
     Dates: start: 20210613
  2. POLYETHYLENE GLYCOLS [Concomitant]
     Active Substance: POLYETHYLENE GLYCOLS
     Dates: start: 201706
  3. CHOLECALCIFEROL [Concomitant]
     Active Substance: CHOLECALCIFEROL
     Dates: start: 20221130

REACTIONS (4)
  - Respiratory tract infection [Recovered/Resolved]
  - Pyrexia [Recovered/Resolved]
  - Cough [Recovered/Resolved]
  - Rubella [Recovered/Resolved]

NARRATIVE: CASE EVENT DATE: 20221223
